FAERS Safety Report 8169631-X (Version None)
Quarter: 2012Q1

REPORT INFORMATION
  Report Type: 
  Country: None (occurrence: None)
  Receive Date: 20120228
  Receipt Date: 20120224
  Transmission Date: 20120608
  Serious: No
  Sender: FDA-Public Use
  Company Number: US-PFIZER INC-2012049954

PATIENT
  Sex: Female
  Weight: 69.388 kg

DRUGS (1)
  1. XALKORI [Suspect]
     Indication: LUNG NEOPLASM MALIGNANT
     Dosage: UNK, 1X/DAY
     Route: 048
     Dates: start: 20120224

REACTIONS (2)
  - MALAISE [None]
  - VOMITING [None]
